FAERS Safety Report 6794806-1 (Version None)
Quarter: 2010Q2

REPORT INFORMATION
  Report Type: 
  Country: None (occurrence: None)
  Receive Date: 20100625
  Receipt Date: 20100618
  Transmission Date: 20101027
  Serious: Yes (Other)
  Sender: FDA-Public Use
  Company Number: US-BRISTOL-MYERS SQUIBB COMPANY-15161169

PATIENT
  Sex: Male

DRUGS (3)
  1. COUMADIN [Suspect]
     Indication: DEEP VEIN THROMBOSIS
  2. COUMADIN [Interacting]
     Indication: POST PROCEDURAL COMPLICATION
  3. TEGRETOL [Interacting]
     Indication: PAIN
     Dates: start: 20091204

REACTIONS (2)
  - DRUG INTERACTION [None]
  - THROMBOSIS [None]
